FAERS Safety Report 4759825-5 (Version None)
Quarter: 2005Q3

REPORT INFORMATION
  Report Type: 
  Country: None (occurrence: None)
  Receive Date: 20050831
  Receipt Date: 20050831
  Transmission Date: 20060218
  Serious: Yes (Hospitalization)
  Sender: FDA-Public Use
  Company Number: None

PATIENT
  Age: 94 Year
  Sex: Female

DRUGS (1)
  1. CELECOXIB    200 MG     PFIZER [Suspect]
     Indication: OSTEOARTHRITIS
     Dosage: 200 MG   DAILY   PO
     Route: 048

REACTIONS (7)
  - BLOOD PRESSURE DECREASED [None]
  - GASTROINTESTINAL ULCER [None]
  - HAEMATOCRIT DECREASED [None]
  - HAEMOGLOBIN DECREASED [None]
  - HYPOTENSION [None]
  - MELAENA [None]
  - MENTAL STATUS CHANGES [None]
